FAERS Safety Report 9364155 (Version 2)
Quarter: 2013Q3

REPORT INFORMATION
  Report Type: Spontaneous
  Country: JP (occurrence: JP)
  Receive Date: 20130624
  Receipt Date: 20130814
  Transmission Date: 20140515
  Serious: Yes (Death)
  Sender: FDA-Public Use
  Company Number: JP-BAYER-2013-076013

PATIENT
  Age: 64 Year
  Sex: Male
  Weight: 79 kg

DRUGS (11)
  1. NEXAVAR [Suspect]
     Indication: HEPATOCELLULAR CARCINOMA
     Dosage: 200 MG, BID
     Route: 048
     Dates: start: 20130508, end: 20130519
  2. NU-LOTAN [Concomitant]
     Dosage: DAILY DOSE 100 MG
     Route: 048
     Dates: end: 20130522
  3. MONILAC [Concomitant]
     Dosage: DAILY DOSE 30 ML
     Route: 048
     Dates: end: 20130515
  4. KALIMATE [Concomitant]
     Dosage: DAILY DOSE 15 G
     Route: 048
     Dates: start: 20130521, end: 20130522
  5. SOLDACTONE [Concomitant]
     Dosage: DAILY DOSE 200 MG
     Route: 041
     Dates: start: 20130505, end: 20130512
  6. SOLDACTONE [Concomitant]
     Dosage: DAILY DOSE 200 MG
     Route: 041
     Dates: start: 20130516, end: 20130520
  7. LASIX [Concomitant]
     Dosage: DAILY DOSE 20 MG
     Route: 041
     Dates: start: 20130501, end: 20130510
  8. LASIX [Concomitant]
     Dosage: DAILY DOSE 40 MG
     Route: 041
     Dates: start: 20130511, end: 20130512
  9. LASIX [Concomitant]
     Dosage: DAILY DOSE 40 MG
     Route: 041
     Dates: start: 20130516, end: 20130522
  10. ALDACTONE A [Concomitant]
     Dosage: DAILY DOSE 75 MG
     Route: 048
     Dates: start: 20130513, end: 20130514
  11. FUROSEMIDE [Concomitant]
     Dosage: DAILY DOSE 40 MG
     Route: 048
     Dates: start: 20130513, end: 20130514

REACTIONS (1)
  - Hepatocellular carcinoma [Fatal]
